FAERS Safety Report 8965804 (Version 1)
Quarter: 2012Q4

REPORT INFORMATION
  Report Type: Spontaneous
  Country: JP (occurrence: None)
  Receive Date: 20121204
  Receipt Date: 20121204
  Transmission Date: 20130627
  Serious: Yes (Death, Hospitalization, Other)
  Sender: FDA-Public Use
  Company Number: DSA_61127_2012

PATIENT
  Age: 54 Year
  Sex: Female

DRUGS (17)
  1. FLUOROURACIL (FLUOROURACIL) [Suspect]
     Indication: COLORECTAL CANCER METASTATIC
     Dosage: (DF)
     Dates: start: 201001, end: 201004
  2. FLUOROURACIL (FLUOROURACIL) [Suspect]
     Indication: COLORECTAL CANCER METASTATIC
     Dosage: (DF)
     Dates: start: 200611, end: 200801
  3. FLUOROURACIL (FLUOROURACIL) [Suspect]
     Indication: COLORECTAL CANCER METASTATIC
     Dosage: (DF)
     Dates: start: 200802, end: 200805
  4. FLUOROURACIL (FLUOROURACIL) [Suspect]
     Indication: COLORECTAL CANCER METASTATIC
     Dosage: (DF)
     Dates: start: 200806, end: 200904
  5. OXALIPLATIN (OXALIPLATIN) [Suspect]
     Indication: COLORECTAL CANCER METASTATIC
     Dosage: (DF)
     Dates: start: 201001, end: 201003
  6. OXALIPLATIN (OXALIPLATIN) [Suspect]
     Indication: COLORECTAL CANCER METASTATIC
     Dates: start: 201004
  7. OXALIPLATIN (OXALIPLATIN) [Suspect]
     Indication: COLORECTAL CANCER METASTATIC
     Dates: start: 201006
  8. OXALIPLATIN (OXALIPLATIN) [Suspect]
     Indication: COLORECTAL CANCER METASTATIC
     Dosage: (DF)
     Dates: start: 200611, end: 200801
  9. CAPECITABINE [Suspect]
     Indication: COLORECTAL CANCER METASTATIC
     Dosage: every cycle
     Dates: start: 201004
  10. CAPECITABINE [Suspect]
     Indication: COLORECTAL CANCER METASTATIC
  11. CAPECITABINE [Suspect]
     Indication: COLORECTAL CANCER METASTATIC
     Dosage: (DF)
  12. LEUCOVORIN /00566701/ [Suspect]
     Indication: COLORECTAL CANCER METASTATIC
     Dosage: (DF)
     Dates: start: 201001, end: 201004
  13. LEUCOVORIN /00566701/ [Suspect]
     Indication: COLORECTAL CANCER METASTATIC
     Dosage: (DF)
     Dates: start: 200611, end: 200801
  14. LEUCOVORIN /00566701/ [Suspect]
     Indication: COLORECTAL CANCER METASTATIC
     Dosage: (DF)
     Dates: start: 200802, end: 200805
  15. LEUCOVORIN /00566701/ [Suspect]
     Indication: COLORECTAL CANCER METASTATIC
     Dosage: (DF)
     Dates: start: 200801, end: 200904
  16. IRINOTECAN [Concomitant]
  17. LANSOPRAZOLE [Concomitant]

REACTIONS (11)
  - Anaemia haemolytic autoimmune [None]
  - Renal failure acute [None]
  - Neutropenia [None]
  - Malaise [None]
  - Haemodialysis [None]
  - Fatigue [None]
  - Feeling abnormal [None]
  - Normochromic normocytic anaemia [None]
  - General physical health deterioration [None]
  - Colorectal cancer metastatic [None]
  - Malignant neoplasm progression [None]
